FAERS Safety Report 14550752 (Version 1)
Quarter: 2018Q1

REPORT INFORMATION
  Report Type: Spontaneous
  Country: US (occurrence: US)
  Receive Date: 20180220
  Receipt Date: 20180220
  Transmission Date: 20180509
  Serious: No
  Sender: FDA-Public Use
  Company Number: US-JNJFOC-20180132519

PATIENT
  Age: 15 Month
  Sex: Female

DRUGS (2)
  1. TYLENOL [Suspect]
     Active Substance: ACETAMINOPHEN
     Indication: INFLUENZA
     Route: 048
  2. INFANTS MOTRIN [Concomitant]
     Active Substance: IBUPROFEN
     Indication: INFLUENZA
     Route: 048

REACTIONS (1)
  - Wrong technique in product usage process [Unknown]
